FAERS Safety Report 9526130 (Version 3)
Quarter: 2013Q3

REPORT INFORMATION
  Report Type: Spontaneous
  Country: DE (occurrence: DE)
  Receive Date: 20130916
  Receipt Date: 20130917
  Transmission Date: 20140515
  Serious: Yes (Hospitalization)
  Sender: FDA-Public Use
  Company Number: DE-JNJFOC-20130613245

PATIENT
  Sex: Female

DRUGS (8)
  1. XEPLION [Suspect]
     Indication: SCHIZOPHRENIA, PARANOID TYPE
     Route: 030
     Dates: start: 20130822
  2. XEPLION [Suspect]
     Indication: SCHIZOPHRENIA, PARANOID TYPE
     Route: 030
     Dates: start: 20130726, end: 20130726
  3. XEPLION [Suspect]
     Indication: SCHIZOPHRENIA, PARANOID TYPE
     Route: 030
     Dates: start: 2012
  4. VALPROAT [Concomitant]
     Route: 065
  5. VALPROIC ACID [Concomitant]
     Indication: SCHIZOPHRENIA, PARANOID TYPE
     Route: 065
  6. VALPROIC ACID [Concomitant]
     Indication: SCHIZOPHRENIA, PARANOID TYPE
     Route: 065
  7. DOMINAL FORTE [Concomitant]
     Indication: SCHIZOPHRENIA, PARANOID TYPE
     Route: 065
  8. L-THYROXIN [Concomitant]
     Indication: HYPOTHYROIDISM
     Route: 065

REACTIONS (15)
  - Gait disturbance [Recovered/Resolved]
  - Hospitalisation [Recovered/Resolved]
  - Schizophrenia, paranoid type [Unknown]
  - Dysphemia [Unknown]
  - Decreased appetite [Unknown]
  - Crepitations [Recovered/Resolved]
  - Hypokinesia [Recovered/Resolved]
  - Dizziness [Unknown]
  - Restlessness [Unknown]
  - Tremor [Unknown]
  - Haemophobia [Unknown]
  - Gastric disorder [Unknown]
  - Sleep disorder [Unknown]
  - Sensory disturbance [Unknown]
  - Activities of daily living impaired [Unknown]
